FAERS Safety Report 7680452-4 (Version None)
Quarter: 2011Q3

REPORT INFORMATION
  Report Type: 
  Country: None (occurrence: None)
  Receive Date: 20110812
  Receipt Date: 20110808
  Transmission Date: 20111222
  Serious: Yes (Hospitalization)
  Sender: FDA-Public Use
  Company Number: MY-SANOFI-AVENTIS-2011SA051211

PATIENT
  Age: 51 Year
  Sex: Male

DRUGS (9)
  1. VALSARTAN [Concomitant]
     Dates: start: 20070101
  2. HUMULIN N [Concomitant]
     Dates: start: 20070101
  3. SIMVASTATIN [Concomitant]
     Dates: start: 20070101
  4. TICLOPIDINE HCL [Concomitant]
     Dates: start: 20070101
  5. OMEPRAZOLE [Concomitant]
     Dates: start: 20070101
  6. HUMULIN R [Concomitant]
     Dates: start: 20070101
  7. FUROSEMIDE [Concomitant]
     Dates: start: 20091108
  8. PLACEBO [Suspect]
     Indication: THROMBOSIS PROPHYLAXIS
     Route: 048
     Dates: start: 20091110, end: 20091110
  9. ENOXAPARIN SODIUM [Suspect]
     Indication: THROMBOSIS PROPHYLAXIS
     Route: 058
     Dates: start: 20091110, end: 20091110

REACTIONS (1)
  - ISCHAEMIC STROKE [None]
